FAERS Safety Report 4813062-4 (Version None)
Quarter: 2005Q4

REPORT INFORMATION
  Report Type: 
  Country: None (occurrence: None)
  Receive Date: 20051028
  Receipt Date: 20051018
  Transmission Date: 20060501
  Serious: Yes (Hospitalization)
  Sender: FDA-Public Use
  Company Number: JP-JNJFOC-20050900624

PATIENT
  Sex: Female
  Weight: 41 kg

DRUGS (16)
  1. REMICADE [Suspect]
     Route: 042
  2. REMICADE [Suspect]
     Route: 042
  3. REMICADE [Suspect]
     Route: 042
  4. REMICADE [Suspect]
     Route: 042
  5. REMICADE [Suspect]
     Indication: RHEUMATOID ARTHRITIS
     Route: 042
  6. RHEUMATREX [Suspect]
     Indication: RHEUMATOID ARTHRITIS
     Route: 048
  7. PREDONINE [Suspect]
     Indication: RHEUMATOID ARTHRITIS
     Route: 048
  8. CLARITHROMYCIN [Concomitant]
     Indication: RHEUMATOID ARTHRITIS
     Route: 048
  9. CLARITHROMYCIN [Concomitant]
     Indication: BRONCHITIS CHRONIC
     Route: 048
  10. ADRENAL HORMONE PREPARATIONS [Concomitant]
     Indication: RHEUMATOID ARTHRITIS
  11. RANITIDINE HYDROCHLORIDE [Concomitant]
     Indication: GASTRIC ULCER
     Route: 048
  12. EBASTEL [Concomitant]
     Route: 048
  13. MUCOSTA [Concomitant]
     Indication: GASTRIC ULCER
     Route: 048
  14. TOCOPHEROL CONCENTRATE CAP [Concomitant]
     Indication: PERIPHERAL CIRCULATORY FAILURE
     Route: 048
  15. SANLOXO [Concomitant]
     Indication: RHEUMATOID ARTHRITIS
     Route: 048
  16. LOXONIN [Concomitant]
     Indication: RHEUMATOID ARTHRITIS
     Route: 048

REACTIONS (2)
  - HERPES ZOSTER [None]
  - TUBERCULOUS PLEURISY [None]
